FAERS Safety Report 13309150 (Version 1)
Quarter: 2017Q1

REPORT INFORMATION
  Report Type: Spontaneous
  Country: US (occurrence: US)
  Receive Date: 20170308
  Receipt Date: 20170308
  Transmission Date: 20170428
  Serious: Yes (Other)
  Sender: FDA-Public Use
  Company Number: US-ELI_LILLY_AND_COMPANY-US201607011843

PATIENT
  Sex: Male

DRUGS (17)
  1. CYMBALTA [Suspect]
     Active Substance: DULOXETINE HYDROCHLORIDE
     Dosage: 40 MG, AT BED TIME
     Route: 048
  2. CELEBREX [Concomitant]
     Active Substance: CELECOXIB
     Dosage: 100 MG, BID
     Route: 048
  3. TOPIRAMATE. [Concomitant]
     Active Substance: TOPIRAMATE
     Dosage: 25 MG, BID
     Route: 048
  4. EXCEDRIN [Concomitant]
     Active Substance: ACETAMINOPHEN\ASPIRIN\CAFFEINE
     Dosage: UNK, UNKNOWN
     Route: 048
  5. SOMA [Suspect]
     Active Substance: CARISOPRODOL
     Indication: PRODUCT USED FOR UNKNOWN INDICATION
     Dosage: 350 MG, AT BED TIME
     Route: 048
     Dates: start: 20150518
  6. NEURONTIN [Concomitant]
     Active Substance: GABAPENTIN
     Dosage: 300 MG, TID
     Route: 048
  7. ACIPHEX [Concomitant]
     Active Substance: RABEPRAZOLE SODIUM
     Dosage: 20 MG, UNKNOWN
     Route: 048
  8. IBUPROFEN. [Concomitant]
     Active Substance: IBUPROFEN
     Dosage: UNK, UNKNOWN
     Route: 048
  9. NEURONTIN [Concomitant]
     Active Substance: GABAPENTIN
     Dosage: 200 MG, TID
     Route: 048
  10. LYRICA [Suspect]
     Active Substance: PREGABALIN
     Dosage: 50 MG, BID
     Route: 048
  11. VICODIN [Concomitant]
     Active Substance: ACETAMINOPHEN\HYDROCODONE BITARTRATE
     Dosage: UNK, UNKNOWN
     Route: 048
  12. CYMBALTA [Suspect]
     Active Substance: DULOXETINE HYDROCHLORIDE
     Indication: PRODUCT USED FOR UNKNOWN INDICATION
     Dosage: UNK, UNKNOWN
     Route: 048
  13. TOPIRAMATE. [Concomitant]
     Active Substance: TOPIRAMATE
     Dosage: 50 MG, BID
     Route: 048
  14. NEURONTIN [Concomitant]
     Active Substance: GABAPENTIN
     Dosage: 100 MG, TID
     Route: 048
  15. ACYCLOVIR                          /00587301/ [Concomitant]
     Active Substance: ACYCLOVIR
     Dosage: UNK, UNKNOWN
     Route: 048
  16. LYRICA [Suspect]
     Active Substance: PREGABALIN
     Indication: PRODUCT USED FOR UNKNOWN INDICATION
     Dosage: UNK UNK, UNKNOWN
     Route: 048
  17. AMITRIPTYLINE [Concomitant]
     Active Substance: AMITRIPTYLINE
     Dosage: 10 MG, PRN
     Route: 048

REACTIONS (18)
  - Sensory disturbance [Unknown]
  - Paraesthesia [Unknown]
  - Confusional state [Unknown]
  - Drug withdrawal syndrome [Unknown]
  - Tinnitus [Unknown]
  - Fatigue [Unknown]
  - Diarrhoea [Unknown]
  - Insomnia [Unknown]
  - Dizziness [Unknown]
  - Anxiety [Unknown]
  - Suicidal ideation [Unknown]
  - Affect lability [Unknown]
  - Nausea [Unknown]
  - Hyperhidrosis [Unknown]
  - Dysphoria [Unknown]
  - Headache [Unknown]
  - Irritability [Unknown]
  - Agitation [Unknown]
